FAERS Safety Report 9451516 (Version 1)
Quarter: 2013Q3

REPORT INFORMATION
  Report Type: Spontaneous
  Country: US (occurrence: US)
  Receive Date: 20130811
  Receipt Date: 20130811
  Transmission Date: 20140515
  Serious: No
  Sender: FDA-Public Use
  Company Number: US-TEVA-422963USA

PATIENT
  Sex: Male

DRUGS (1)
  1. AMRIX [Suspect]
     Indication: MUSCLE SPASMS
     Dosage: 15 MILLIGRAM DAILY; AT NIGHT

REACTIONS (2)
  - Somnolence [Unknown]
  - Hypersomnia [Unknown]
